FAERS Safety Report 8825522 (Version 2)
Quarter: 2012Q4

REPORT INFORMATION
  Report Type: 
  Country: CN (occurrence: CN)
  Receive Date: 20121004
  Receipt Date: 20121010
  Transmission Date: 20130627
  Serious: Yes (Hospitalization)
  Sender: FDA-Public Use
  Company Number: CN-JNJFOC-20120911426

PATIENT
  Age: 24 Month

DRUGS (2)
  1. GYNO-DAKTARIN [Suspect]
     Route: 048
  2. GYNO-DAKTARIN [Suspect]
     Indication: ACCIDENTAL EXPOSURE TO PRODUCT
     Route: 048
     Dates: start: 20120925, end: 20120925

REACTIONS (3)
  - Haematochezia [Recovered/Resolved]
  - Diarrhoea [Recovered/Resolved]
  - Accidental exposure to product by child [Unknown]
